FAERS Safety Report 6024230-0 (Version None)
Quarter: 2008Q4

REPORT INFORMATION
  Report Type: 
  Country: None (occurrence: None)
  Receive Date: 20081229
  Receipt Date: 20081217
  Transmission Date: 20090506
  Serious: Yes (Hospitalization)
  Sender: FDA-Public Use
  Company Number: CLOF-1000202

PATIENT
  Age: 63 Year
  Sex: Female
  Weight: 116.2 kg

DRUGS (25)
  1. CLOLAR [Suspect]
     Indication: CHRONIC MYELOID LEUKAEMIA
     Dosage: 71.7 MG, QDX5, INTRAVENOUS
     Route: 042
     Dates: start: 20080328, end: 20080401
  2. BUSULFAN [Suspect]
     Indication: CHRONIC MYELOID LEUKAEMIA
     Dosage: 291 MG, QD, INTRAVENOUS
     Route: 042
     Dates: start: 20080329, end: 20080401
  3. MICAFUNGIN SODIUM [Suspect]
  4. UNKNOWN [Suspect]
  5. METHYLPREDNISOLONE 16MG TAB [Concomitant]
  6. TACROLIMUS [Concomitant]
  7. LEVOFLOXACIN [Concomitant]
  8. VANCOMYCIN HYDROCHLORIDE [Concomitant]
  9. MOMETASONE FUROATE [Concomitant]
  10. OSELTAMIVIR PHOSPHATE [Suspect]
  11. URSODIOL [Concomitant]
  12. PHENYTOIN SODIUM EXTENDED [Suspect]
  13. MULTIVITAMIN [Concomitant]
  14. PANTOPRAZOLE SODIUM [Concomitant]
  15. ESCITALOPRAM OXALATE [Concomitant]
  16. METOPROLOL SUCCINATE [Concomitant]
  17. LEVETIRACETAM [Concomitant]
  18. HYDROCORTISONE (HYDROCORTISONE) [Concomitant]
  19. GABAPENTIN [Concomitant]
  20. METFORMIN HCL [Concomitant]
  21. FLUTICASONE PROPIONATE AND SALMETEROL [Concomitant]
  22. CYCLOSPORINE [Concomitant]
  23. CALCIUM CITRATE [Concomitant]
  24. CETIRIZINE HYDROCHLORIDE [Concomitant]
  25. ACYCLOVIR [Concomitant]

REACTIONS (4)
  - ALANINE AMINOTRANSFERASE INCREASED [None]
  - ASPARTATE AMINOTRANSFERASE INCREASED [None]
  - HYPOXIA [None]
  - STAPHYLOCOCCAL INFECTION [None]
